FAERS Safety Report 21477164 (Version 3)
Quarter: 2022Q4

REPORT INFORMATION
  Report Type: Report from Study
  Country: CA (occurrence: CA)
  Receive Date: 20221019
  Receipt Date: 20221115
  Transmission Date: 20230113
  Serious: Yes (Hospitalization)
  Sender: FDA-Public Use
  Company Number: CA-BRISTOL-MYERS SQUIBB COMPANY-2022-123014

PATIENT
  Age: 77 Year
  Sex: Female

DRUGS (4)
  1. INREBIC [Suspect]
     Active Substance: FEDRATINIB HYDROCHLORIDE
     Indication: Myelofibrosis
     Route: 048
     Dates: start: 20220504
  2. INREBIC [Suspect]
     Active Substance: FEDRATINIB HYDROCHLORIDE
     Route: 048
     Dates: start: 20221013, end: 20221015
  3. INREBIC [Suspect]
     Active Substance: FEDRATINIB HYDROCHLORIDE
     Dosage: 4 X 100 MG
     Route: 048
     Dates: start: 20221028
  4. INREBIC [Suspect]
     Active Substance: FEDRATINIB HYDROCHLORIDE
     Dosage: OD
     Route: 065
     Dates: start: 20221104, end: 20221104

REACTIONS (4)
  - Diarrhoea [Unknown]
  - COVID-19 [Recovered/Resolved]
  - Vomiting [Recovering/Resolving]
  - Malaise [Unknown]

NARRATIVE: CASE EVENT DATE: 20221028
